FAERS Safety Report 4653282-5 (Version None)
Quarter: 2005Q2

REPORT INFORMATION
  Report Type: 
  Country: None (occurrence: None)
  Receive Date: 20050505
  Receipt Date: 20050422
  Transmission Date: 20051028
  Serious: Yes (Death)
  Sender: FDA-Public Use
  Company Number: GB-BOEHRINGER INGELHEIM PHARMACEUTICALS, INC.-2005-UK-00676UK

PATIENT
  Sex: Male

DRUGS (24)
  1. COMBIVENT [Suspect]
     Route: 055
  2. SPIRIVA [Suspect]
     Route: 055
  3. SALBUTAMOL [Suspect]
     Route: 055
  4. ASPIRIN [Suspect]
  5. ATORVASTATIN CALCIUM [Suspect]
  6. BECLOMETHASONE DIPROPIONATE [Suspect]
     Route: 055
  7. CO-AMILOFRUSE [Suspect]
  8. DEXAMETHASONE [Suspect]
  9. DILTIAZEM HYDROCHLORIDE [Suspect]
  10. DOSULEPIN [Suspect]
  11. FUROSEMIDE [Suspect]
  12. GAVISCON [Suspect]
  13. LACTULOSE [Suspect]
     Dosage: 3.35 G/5 ML
  14. LANSOPRAZOLE [Suspect]
  15. METOCLOPRAMIDE HYDROCHLORIDE [Suspect]
  16. NITROLINGUAL [Suspect]
     Route: 055
  17. NOZINAN [Suspect]
  18. OXYCODONE HCL [Suspect]
  19. OXYCODONE HCL [Suspect]
     Dosage: 10MG/ML
     Route: 048
  20. OXYCODONE HCL [Suspect]
     Dosage: 5MG/5ML
     Route: 048
  21. OXYGEN [Suspect]
     Route: 055
  22. SPIRONOLACTONE [Suspect]
  23. SYMBICORT [Suspect]
     Dosage: 200/6 MCG/INHALATION
     Route: 055
  24. TEMAZEPAM [Suspect]

REACTIONS (1)
  - LUNG NEOPLASM MALIGNANT [None]
